FAERS Safety Report 15320286 (Version 1)
Quarter: 2018Q4

REPORT INFORMATION
  Report Type: Not Available
  Country: IN (occurrence: IN)
  Receive Date: 20180827
  Receipt Date: 20180827
  Transmission Date: 20190204
  Serious: Yes (Hospitalization, Other)
  Sender: FDA-Public Use
  Company Number: IN-MANKIND-000071

PATIENT
  Age: 40 Year
  Sex: Female

DRUGS (1)
  1. RISPERIDONE. [Suspect]
     Active Substance: RISPERIDONE
     Indication: SCHIZOPHRENIA
     Dosage: 4 MG

REACTIONS (5)
  - Optic atrophy [Unknown]
  - Weight increased [Unknown]
  - Idiopathic intracranial hypertension [Recovered/Resolved]
  - Blindness [Recovered/Resolved]
  - Papilloedema [Unknown]
